FAERS Safety Report 10279062 (Version 1)
Quarter: 2014Q3

REPORT INFORMATION
  Report Type: Spontaneous
  Country: GR (occurrence: GR)
  Receive Date: 20140707
  Receipt Date: 20140707
  Transmission Date: 20150326
  Serious: Yes (Hospitalization, Other)
  Sender: FDA-Public Use
  Company Number: GR-ROCHE-1430089

PATIENT
  Age: 69 Year
  Sex: Female

DRUGS (1)
  1. XENICAL [Suspect]
     Active Substance: ORLISTAT
     Indication: WEIGHT DECREASED
     Route: 048
     Dates: end: 201204

REACTIONS (2)
  - Pruritus [Recovered/Resolved]
  - Autoimmune pancreatitis [Recovered/Resolved]

NARRATIVE: CASE EVENT DATE: 20120915
